FAERS Safety Report 4324463-5 (Version None)
Quarter: 2004Q1

REPORT INFORMATION
  Report Type: 
  Country: None (occurrence: None)
  Receive Date: 20040326
  Receipt Date: 20040217
  Transmission Date: 20041129
  Serious: No
  Sender: FDA-Public Use
  Company Number: US-GLAXOSMITHKLINE-A0498558A

PATIENT
  Age: 69 Year
  Sex: Female

DRUGS (8)
  1. ADVAIR DISKUS 100/50 [Suspect]
     Indication: ASTHMA
     Dosage: 1PUFF TWICE PER DAY
     Route: 055
  2. LEXAPRO [Concomitant]
  3. NEXIUM [Concomitant]
  4. LORAZEPAM [Concomitant]
  5. CLARITIN [Concomitant]
  6. ALBUTEROL [Concomitant]
  7. FLAGYL [Concomitant]
  8. CIPRO [Concomitant]

REACTIONS (3)
  - DIVERTICULITIS [None]
  - GASTROOESOPHAGEAL REFLUX DISEASE [None]
  - OESOPHAGEAL CANDIDIASIS [None]
